FAERS Safety Report 26191926 (Version 1)
Quarter: 2025Q4

REPORT INFORMATION
  Report Type: Spontaneous
  Country: US (occurrence: US)
  Receive Date: 20251223
  Receipt Date: 20251223
  Transmission Date: 20260118
  Serious: Yes (Hospitalization, Other)
  Sender: AMGEN
  Company Number: US-AMGEN-USASP2025248499

PATIENT
  Age: 61 Year
  Sex: Female

DRUGS (6)
  1. TARLATAMAB [Suspect]
     Active Substance: TARLATAMAB
     Indication: Small cell lung cancer extensive stage
     Dosage: UNK, INFUSION
     Route: 065
  2. TARLATAMAB [Suspect]
     Active Substance: TARLATAMAB
     Dosage: UNK, INFUSION
     Route: 065
  3. XGEVA [Suspect]
     Active Substance: DENOSUMAB
     Indication: Small cell lung cancer extensive stage
     Dosage: UNK
     Route: 065
  4. CARBOPLATIN [Concomitant]
     Active Substance: CARBOPLATIN
     Indication: Small cell lung cancer extensive stage
     Dosage: UNK
     Route: 065
  5. ETOPOSIDE [Concomitant]
     Active Substance: ETOPOSIDE
     Indication: Small cell lung cancer extensive stage
  6. ATEZOLIZUMAB [Concomitant]
     Active Substance: ATEZOLIZUMAB
     Indication: Small cell lung cancer extensive stage

REACTIONS (7)
  - Asthenia [Unknown]
  - Hypophagia [Unknown]
  - Metastases to liver [Unknown]
  - Metastases to oesophagus [Unknown]
  - Small cell lung cancer extensive stage [Unknown]
  - Cytokine release syndrome [Unknown]
  - Drug intolerance [Unknown]
